FAERS Safety Report 11893393 (Version 1)
Quarter: 2016Q1

REPORT INFORMATION
  Report Type: Spontaneous
  Country: US (occurrence: US)
  Receive Date: 20160106
  Receipt Date: 20160106
  Transmission Date: 20160526
  Serious: No
  Sender: FDA-Public Use
  Company Number: US-GILEAD-2015-0190738

PATIENT
  Sex: Female

DRUGS (3)
  1. HARVONI [Suspect]
     Active Substance: LEDIPASVIR\SOFOSBUVIR
     Indication: HEPATITIS C
     Dosage: UNK
     Route: 065
  2. RIBAVIRIN. [Suspect]
     Active Substance: RIBAVIRIN
     Indication: HEPATITIS C
     Dosage: UNK
     Route: 048
     Dates: start: 200307, end: 200307
  3. INTERFERON [Suspect]
     Active Substance: INTERFERON
     Indication: HEPATITIS C
     Dosage: UNK
     Route: 065
     Dates: start: 201307, end: 201307

REACTIONS (18)
  - Myalgia [Unknown]
  - Fatigue [Unknown]
  - Drug intolerance [Unknown]
  - Muscular weakness [Unknown]
  - Weight decreased [Unknown]
  - Dyspnoea [Unknown]
  - Increased tendency to bruise [Unknown]
  - Decreased appetite [Unknown]
  - Cystitis [Unknown]
  - Dental caries [Unknown]
  - Chest pain [Unknown]
  - Disorientation [Unknown]
  - Nausea [Unknown]
  - Condition aggravated [Unknown]
  - Arthralgia [Unknown]
  - Flank pain [Unknown]
  - Headache [Unknown]
  - Pleuritic pain [Unknown]

NARRATIVE: CASE EVENT DATE: 2006
